FAERS Safety Report 8326564-3 (Version None)
Quarter: 2012Q2

REPORT INFORMATION
  Report Type: 
  Country: None (occurrence: None)
  Receive Date: 20120501
  Receipt Date: 20120420
  Transmission Date: 20120825
  Serious: Yes (Hospitalization)
  Sender: FDA-Public Use
  Company Number: FR-JNJFOC-20120410053

PATIENT
  Age: 61 Year
  Sex: Male

DRUGS (2)
  1. REMICADE [Suspect]
     Indication: PROCTOCOLITIS
     Route: 042
  2. AZATHIOPRINE [Suspect]
     Indication: PROCTOCOLITIS
     Route: 048
     Dates: start: 20070101

REACTIONS (1)
  - ACUTE MYELOID LEUKAEMIA [None]
